FAERS Safety Report 8620055-8 (Version None)
Quarter: 2012Q3

REPORT INFORMATION
  Report Type: 
  Country: None (occurrence: None)
  Receive Date: 20120824
  Receipt Date: 20120816
  Transmission Date: 20120928
  Serious: Yes (Hospitalization, Other)
  Sender: FDA-Public Use
  Company Number: US-009507513-1108USA02954

PATIENT

DRUGS (8)
  1. FOSAMAX [Suspect]
     Dosage: 10 MG, UNK
     Route: 048
  2. FOSAMAX PLUS D [Suspect]
     Indication: OSTEOPOROSIS
     Dosage: 70/2800
     Route: 048
     Dates: start: 20071001, end: 20090301
  3. PLAQUENIL [Concomitant]
     Indication: SJOGREN'S SYNDROME
     Dates: start: 19951001
  4. ESTROPIPATE [Concomitant]
     Dosage: UNK, QD
     Route: 048
     Dates: start: 19810101, end: 20030101
  5. FOSAMAX [Suspect]
     Indication: OSTEOPOROSIS
     Dosage: 70 MG, QW
     Route: 048
     Dates: start: 19971108, end: 20071001
  6. MK-9278 [Concomitant]
     Dosage: 1 DF, QD
     Dates: start: 19980101
  7. CITRACAL + D [Concomitant]
     Dosage: 1-2
     Route: 048
     Dates: start: 19980101
  8. ALENDRONATE SODIUM [Suspect]
     Indication: OSTEOPOROSIS
     Dosage: 70 MG, QW
     Route: 048
     Dates: start: 20090301, end: 20090801

REACTIONS (26)
  - CHONDROPATHY [None]
  - OSTEOARTHRITIS [None]
  - CEREBRAL SMALL VESSEL ISCHAEMIC DISEASE [None]
  - CYST [None]
  - HYPERLIPIDAEMIA [None]
  - MALABSORPTION [None]
  - SQUAMOUS CELL CARCINOMA [None]
  - MENISCUS LESION [None]
  - LIGAMENT DISORDER [None]
  - SYNOVITIS [None]
  - FEMOROACETABULAR IMPINGEMENT [None]
  - HEADACHE [None]
  - JOINT EFFUSION [None]
  - ARTHRALGIA [None]
  - GROIN PAIN [None]
  - ROTATOR CUFF SYNDROME [None]
  - AMAUROSIS [None]
  - DIZZINESS [None]
  - ARTHROPATHY [None]
  - PATELLOFEMORAL PAIN SYNDROME [None]
  - SYNOVIAL CYST [None]
  - RHEUMATOID FACTOR POSITIVE [None]
  - FEMUR FRACTURE [None]
  - VITAMIN D DEFICIENCY [None]
  - TOOTH DISORDER [None]
  - EYE PAIN [None]
